FAERS Safety Report 13734657 (Version 1)
Quarter: 2017Q3

REPORT INFORMATION
  Report Type: Report from Study
  Country: None (occurrence: BR)
  Receive Date: 20170709
  Receipt Date: 20170709
  Transmission Date: 20171127
  Serious: Yes (Other)
  Sender: FDA-Public Use
  Company Number: BR-ABBVIE-16K-020-1773908-00

PATIENT
  Sex: Male
  Weight: 101 kg

DRUGS (12)
  1. HYDROCHLOROTHIAZIDE. [Concomitant]
     Active Substance: HYDROCHLOROTHIAZIDE
     Indication: DIURETIC THERAPY
     Route: 048
     Dates: start: 2011
  2. FOLIC ACID. [Concomitant]
     Active Substance: FOLIC ACID
     Indication: ARTHROPATHY
     Route: 048
     Dates: start: 2014
  3. SPIRONOLACTONE. [Concomitant]
     Active Substance: SPIRONOLACTONE
     Indication: BLOOD PRESSURE ABNORMAL
     Route: 048
     Dates: start: 2011
  4. BRASART [Concomitant]
     Active Substance: VALSARTAN
     Indication: HYPERTENSION
     Route: 048
     Dates: start: 2011
  5. OSTEOBAN [Concomitant]
     Indication: BLOOD CALCIUM
     Route: 048
     Dates: start: 201704
  6. VITAMIN D [Concomitant]
     Active Substance: CHOLECALCIFEROL
     Indication: VITAMIN SUPPLEMENTATION
     Route: 048
     Dates: start: 2015
  7. HUMIRA [Suspect]
     Active Substance: ADALIMUMAB
     Indication: PSORIATIC ARTHROPATHY
     Route: 058
     Dates: start: 20151116
  8. EXODUS [Concomitant]
     Active Substance: ESCITALOPRAM OXALATE
     Indication: ANTIDEPRESSANT THERAPY
     Route: 048
     Dates: start: 2002
  9. OXCARBAZEPIN [Concomitant]
     Active Substance: OXCARBAZEPINE
     Indication: ANTIDEPRESSANT THERAPY
     Route: 048
     Dates: start: 2013
  10. REVANGE [Concomitant]
     Indication: PAIN
     Route: 048
     Dates: start: 2013
  11. PREDSIM [Concomitant]
     Active Substance: PREDNISOLONE
     Indication: INFLAMMATION
     Route: 048
     Dates: start: 2014
  12. METHOTREXATE. [Concomitant]
     Active Substance: METHOTREXATE
     Indication: PSORIASIS
     Route: 048
     Dates: start: 2014

REACTIONS (3)
  - Osteoarthritis [Recovered/Resolved]
  - Fracture [Unknown]
  - Osteoarthritis [Not Recovered/Not Resolved]
